FAERS Safety Report 8060418-5 (Version None)
Quarter: 2012Q1

REPORT INFORMATION
  Report Type: 
  Country: None (occurrence: None)
  Receive Date: 20120120
  Receipt Date: 20120113
  Transmission Date: 20120608
  Serious: Yes (Other)
  Sender: FDA-Public Use
  Company Number: US-GLAXOSMITHKLINE-A0961414A

PATIENT
  Age: 61 Year
  Sex: Male

DRUGS (6)
  1. MICARDIS [Concomitant]
  2. LISINOPRIL [Concomitant]
  3. QVAR 40 [Concomitant]
  4. ADVAIR DISKUS 100/50 [Suspect]
     Indication: CHRONIC OBSTRUCTIVE PULMONARY DISEASE
     Dosage: 1PUFF TWICE PER DAY
     Route: 055
     Dates: start: 20110901
  5. SPIRIVA [Concomitant]
  6. VENTOLIN HFA [Suspect]
     Indication: CHRONIC OBSTRUCTIVE PULMONARY DISEASE
     Dosage: 2PUFF AS REQUIRED
     Route: 055

REACTIONS (6)
  - ASTHMA [None]
  - RESPIRATION ABNORMAL [None]
  - FEELING JITTERY [None]
  - DYSPNOEA [None]
  - THERAPEUTIC RESPONSE DECREASED [None]
  - WHEEZING [None]
